FAERS Safety Report 10701016 (Version 2)
Quarter: 2015Q1

REPORT INFORMATION
  Report Type: Spontaneous
  Country: US (occurrence: US)
  Receive Date: 20150109
  Receipt Date: 20150119
  Transmission Date: 20150721
  Serious: No
  Sender: FDA-Public Use
  Company Number: US-009507513-1501USA002543

PATIENT
  Sex: Female
  Weight: 54.88 kg

DRUGS (1)
  1. NEXPLANON [Suspect]
     Active Substance: ETONOGESTREL
     Indication: CONTRACEPTION
     Dosage: UNK
     Route: 059
     Dates: start: 201303, end: 2014

REACTIONS (2)
  - Menorrhagia [Recovering/Resolving]
  - Device breakage [Recovered/Resolved]

NARRATIVE: CASE EVENT DATE: 2014
